FAERS Safety Report 7961332-3 (Version None)
Quarter: 2011Q4

REPORT INFORMATION
  Report Type: 
  Country: None (occurrence: None)
  Receive Date: 20111202
  Receipt Date: 20111202
  Transmission Date: 20120403
  Serious: Yes (Death)
  Sender: FDA-Public Use
  Company Number: None

PATIENT
  Age: 5 Year
  Sex: Female

DRUGS (1)
  1. NEULASTA [Suspect]
     Indication: CHRONIC MYELOID LEUKAEMIA
     Dosage: 2MG Q21 DAYS SQ
     Route: 058
     Dates: start: 20110830, end: 20111101

REACTIONS (3)
  - FLUID RETENTION [None]
  - ARTHRALGIA [None]
  - ORGAN FAILURE [None]
